FAERS Safety Report 13762702 (Version 1)
Quarter: 2017Q3

REPORT INFORMATION
  Report Type: Report from Study
  Country: PH (occurrence: PH)
  Receive Date: 20170718
  Receipt Date: 20170718
  Transmission Date: 20171127
  Serious: Yes (Death, Hospitalization, Other)
  Sender: FDA-Public Use
  Company Number: PHHY2017PH074200

PATIENT
  Sex: Female

DRUGS (2)
  1. TASIGNA [Suspect]
     Active Substance: NILOTINIB
     Indication: CHRONIC MYELOID LEUKAEMIA
     Dosage: 150 MG, QID (FOUR TIMES OF DAY)
     Route: 048
  2. TASIGNA [Suspect]
     Active Substance: NILOTINIB
     Dosage: 1 CAP OD TO 2 CAPS BID
     Route: 048

REACTIONS (5)
  - Blast crisis in myelogenous leukaemia [Fatal]
  - Sepsis [Fatal]
  - Abdominal infection [Fatal]
  - Cytopenia [Unknown]
  - Infection [Unknown]
